FAERS Safety Report 12108612 (Version 1)
Quarter: 2016Q1

REPORT INFORMATION
  Report Type: Spontaneous
  Country: US (occurrence: US)
  Receive Date: 20160224
  Receipt Date: 20160224
  Transmission Date: 20160526
  Serious: No
  Sender: FDA-Public Use
  Company Number: US-BIOGEN-2016BI00191643

PATIENT
  Sex: Female

DRUGS (3)
  1. TECFIDERA [Suspect]
     Active Substance: DIMETHYL FUMARATE
  2. TECFIDERA [Suspect]
     Active Substance: DIMETHYL FUMARATE
  3. TECFIDERA [Suspect]
     Active Substance: DIMETHYL FUMARATE
     Indication: MULTIPLE SCLEROSIS

REACTIONS (5)
  - Intentional product misuse [Unknown]
  - Weight increased [Unknown]
  - Drug intolerance [Unknown]
  - Abdominal discomfort [Unknown]
  - Flushing [Unknown]
